FAERS Safety Report 19856783 (Version 2)
Quarter: 2021Q4

REPORT INFORMATION
  Report Type: Spontaneous
  Country: AU (occurrence: AU)
  Receive Date: 20210920
  Receipt Date: 20211108
  Transmission Date: 20220303
  Serious: No
  Sender: FDA-Public Use
  Company Number: AU-JNJFOC-20210921179

PATIENT

DRUGS (3)
  1. FENTANYL [Suspect]
     Active Substance: FENTANYL
     Indication: Product used for unknown indication
     Dosage: STRENGTH: 12.00 MCG/HR
     Route: 062
  2. FENTANYL [Suspect]
     Active Substance: FENTANYL
  3. FENTANYL [Suspect]
     Active Substance: FENTANYL

REACTIONS (2)
  - Product adhesion issue [Unknown]
  - Product packaging issue [Unknown]
